APPROVED DRUG PRODUCT: XYLOCAINE PRESERVATIVE FREE
Active Ingredient: LIDOCAINE HYDROCHLORIDE
Strength: 4% **Federal Register determination that product was not discontinued or withdrawn for safety or effectiveness reasons**
Dosage Form/Route: INJECTABLE;INJECTION
Application: N016801 | Product #002
Applicant: FRESENIUS KABI USA LLC
Approved: Approved Prior to Jan 1, 1982 | RLD: Yes | RS: No | Type: DISCN